FAERS Safety Report 22155187 (Version 5)
Quarter: 2023Q2

REPORT INFORMATION
  Report Type: Report from Study
  Country: CZ (occurrence: CZ)
  Receive Date: 20230330
  Receipt Date: 20230412
  Transmission Date: 20230722
  Serious: Yes (Life-Threatening, Hospitalization)
  Sender: FDA-Public Use
  Company Number: CZ-BIOGEN-2023BI01195633

PATIENT
  Age: 0 Year
  Sex: Female
  Weight: 3.27 kg

DRUGS (5)
  1. TYSABRI [Suspect]
     Active Substance: NATALIZUMAB
     Indication: Maternal exposure timing unspecified
     Route: 050
     Dates: end: 20230105
  2. FOLATE SODIUM [Concomitant]
     Active Substance: FOLATE SODIUM
     Indication: Erythropoiesis abnormal
     Route: 050
  3. KETAMINE [Concomitant]
     Active Substance: KETAMINE
     Indication: Product used for unknown indication
     Route: 050
  4. Vigantol [Concomitant]
     Indication: Product used for unknown indication
     Route: 050
  5. Maltofer [Concomitant]
     Indication: Product used for unknown indication
     Route: 050

REACTIONS (2)
  - Sepsis neonatal [Recovered/Resolved]
  - Foetal exposure during pregnancy [Recovered/Resolved]

NARRATIVE: CASE EVENT DATE: 20230214
